FAERS Safety Report 26000470 (Version 1)
Quarter: 2025Q4

REPORT INFORMATION
  Report Type: Spontaneous
  Country: US (occurrence: US)
  Receive Date: 20251105
  Receipt Date: 20251105
  Transmission Date: 20260117
  Serious: No
  Sender: ANI
  Company Number: US-ANIPHARMA-2025-US-040386

PATIENT
  Age: 62 Year
  Sex: Female
  Weight: 104.33 kg

DRUGS (1)
  1. CORTICOTROPIN [Suspect]
     Active Substance: CORTICOTROPIN
     Indication: Psoriatic arthropathy
     Dosage: INJECT 80 UNITS (1ML) INTRAMUSCULARLY TWO TIMES A WEEK AS DIRECTED.
     Route: 030
     Dates: start: 202506

REACTIONS (2)
  - Sinusitis [Unknown]
  - Contraindicated product administered [Not Recovered/Not Resolved]
